FAERS Safety Report 24425200 (Version 1)
Quarter: 2024Q4

REPORT INFORMATION
  Report Type: Spontaneous
  Country: US (occurrence: US)
  Receive Date: 20241010
  Receipt Date: 20241010
  Transmission Date: 20250114
  Serious: Yes (Death)
  Sender: MALLINCKRODT
  Company Number: US-MALLINCKRODT-MNK202406147

PATIENT
  Age: 49 Year
  Sex: Female

DRUGS (4)
  1. NITRIC OXIDE [Suspect]
     Active Substance: NITRIC OXIDE
     Indication: Right-to-left cardiac shunt
     Dosage: UNKNOWN
  2. MILRINONE [Concomitant]
     Active Substance: MILRINONE
     Dosage: UNKNOWN
  3. SILDENAFIL [Concomitant]
     Active Substance: SILDENAFIL
     Dosage: UNKNOWN
  4. CARDENE [Concomitant]
     Active Substance: NICARDIPINE HYDROCHLORIDE
     Indication: Pulmonary arterial hypertension
     Dosage: UNKNOWN
     Route: 041

REACTIONS (4)
  - Hypoxia [Fatal]
  - Hypotension [Fatal]
  - Product use issue [Unknown]
  - Product use in unapproved indication [Unknown]
